FAERS Safety Report 21459064 (Version 1)
Quarter: 2022Q4

REPORT INFORMATION
  Report Type: Spontaneous
  Country: US (occurrence: None)
  Receive Date: 20221013
  Receipt Date: 20221013
  Transmission Date: 20230113
  Serious: No
  Sender: FDA-Public Use
  Company Number: None

PATIENT
  Sex: Female

DRUGS (3)
  1. ENBREL [Suspect]
     Active Substance: ETANERCEPT
     Indication: Psoriasis
     Dosage: INJECT 1 ML UNDER THE SKIN (SUBCUTANEOUS INJECTION) ONCE EVERY WEEK
     Route: 058
     Dates: start: 20190130
  2. DEPO-MEDROL [Concomitant]
  3. ZOLEDRONIC [Concomitant]

REACTIONS (1)
  - Surgery [None]
